FAERS Safety Report 5548556-X (Version None)
Quarter: 2007Q4

REPORT INFORMATION
  Report Type: 
  Country: None (occurrence: None)
  Receive Date: 20071211
  Receipt Date: 20070316
  Transmission Date: 20080405
  Serious: No
  Sender: FDA-Public Use
  Company Number: US-AMGEN-KDL214105

PATIENT
  Sex: Male

DRUGS (2)
  1. ENBREL [Suspect]
     Indication: PSORIASIS
     Route: 058
     Dates: start: 20070216, end: 20070227
  2. ENBREL [Suspect]
     Route: 058
     Dates: start: 20070304

REACTIONS (3)
  - COUGH [None]
  - LOWER RESPIRATORY TRACT INFECTION [None]
  - PULMONARY CONGESTION [None]
